FAERS Safety Report 5926194-4 (Version None)
Quarter: 2008Q4

REPORT INFORMATION
  Report Type: 
  Country: None (occurrence: None)
  Receive Date: 20081017
  Receipt Date: 20081006
  Transmission Date: 20090506
  Serious: Yes (Other)
  Sender: FDA-Public Use
  Company Number: 1-16713528

PATIENT

DRUGS (1)
  1. OVIDE [Suspect]
     Indication: LICE INFESTATION
     Dosage: TO SCALP, ONCE, CUTANEOUS
     Route: 003

REACTIONS (2)
  - APPLICATION SITE ULCER [None]
  - DRUG ADMINISTRATION ERROR [None]
